FAERS Safety Report 5436505-4 (Version None)
Quarter: 2007Q3

REPORT INFORMATION
  Report Type: 
  Country: None (occurrence: None)
  Receive Date: 20070831
  Receipt Date: 20070827
  Transmission Date: 20080115
  Serious: Yes (Other)
  Sender: FDA-Public Use
  Company Number: US-JNJFOC-20070805960

PATIENT
  Sex: Female
  Weight: 72.58 kg

DRUGS (4)
  1. EXTRA STRENGTH TYLENOL [Suspect]
     Indication: BACK PAIN
     Route: 048
  2. EXTRA STRENGTH TYLENOL [Suspect]
     Indication: TOOTHACHE
     Route: 048
  3. ALEVE LIQUID GELS [Suspect]
     Indication: BACK PAIN
  4. ALEVE LIQUID GELS [Suspect]
     Indication: TOOTHACHE

REACTIONS (1)
  - RECTAL HAEMORRHAGE [None]
